FAERS Safety Report 14357698 (Version 2)
Quarter: 2018Q1

REPORT INFORMATION
  Report Type: Report from Study
  Country: US (occurrence: US)
  Receive Date: 20180105
  Receipt Date: 20180123
  Transmission Date: 20180509
  Serious: No
  Sender: FDA-Public Use
  Company Number: US-AMGEN-USASL2017188435

PATIENT
  Age: 67 Year
  Sex: Male

DRUGS (3)
  1. REPATHA [Suspect]
     Active Substance: EVOLOCUMAB
     Indication: ARTERIOSCLEROSIS CORONARY ARTERY
  2. REPATHA [Suspect]
     Active Substance: EVOLOCUMAB
     Indication: TYPE IIA HYPERLIPIDAEMIA
     Dosage: 140 MG, Q2WK
     Route: 065
  3. REPATHA [Suspect]
     Active Substance: EVOLOCUMAB
     Indication: CARDIAC DISORDER

REACTIONS (7)
  - Myalgia [Unknown]
  - Pain in extremity [Recovered/Resolved]
  - Back pain [Unknown]
  - Arthralgia [Recovered/Resolved]
  - Burning sensation [Unknown]
  - Neck pain [Unknown]
  - Trigeminal nerve disorder [Recovering/Resolving]

NARRATIVE: CASE EVENT DATE: 20171030
